FAERS Safety Report 14843695 (Version 5)
Quarter: 2019Q1

REPORT INFORMATION
  Report Type: Spontaneous
  Country: DE (occurrence: DE)
  Receive Date: 20180503
  Receipt Date: 20190215
  Transmission Date: 20190417
  Serious: Yes (Other)
  Sender: FDA-Public Use
  Company Number: PHHY2015DE177768

PATIENT
  Age: 48 Year
  Sex: Female
  Weight: 90 kg

DRUGS (4)
  1. TOCILIZUMAB. [Suspect]
     Active Substance: TOCILIZUMAB
     Indication: POLYARTHRITIS
     Dosage: 1 OT, Q4W (DOSAGE ACCORDING TO BODY WEIGHT)
     Route: 042
     Dates: start: 20141118
  2. METHOTREXATE. [Suspect]
     Active Substance: METHOTREXATE
     Indication: POLYARTHRITIS
     Dosage: UNK
     Route: 065
  3. PARACETAMOL [Concomitant]
     Active Substance: ACETAMINOPHEN
     Indication: PRODUCT USED FOR UNKNOWN INDICATION
     Dosage: 1 OT, UNK (INFREQUENT)
     Route: 065
  4. OXAZEPAM. [Concomitant]
     Active Substance: OXAZEPAM
     Indication: PRODUCT USED FOR UNKNOWN INDICATION
     Dosage: UNK
     Route: 065

REACTIONS (19)
  - Hyperhidrosis [Not Recovered/Not Resolved]
  - Thyroid mass [Unknown]
  - Aphthous ulcer [Not Recovered/Not Resolved]
  - Stomatitis [Not Recovered/Not Resolved]
  - Nausea [Unknown]
  - Metabolic disorder [Unknown]
  - Hypertension [Unknown]
  - Breast enlargement [Not Recovered/Not Resolved]
  - Breast tenderness [Not Recovered/Not Resolved]
  - Sciatica [Recovered/Resolved]
  - Drug effect decreased [Not Recovered/Not Resolved]
  - Insulin resistance [Unknown]
  - Fall [Unknown]
  - Diplopia [Not Recovered/Not Resolved]
  - Joint swelling [Not Recovered/Not Resolved]
  - Pharyngitis [Recovered/Resolved]
  - Headache [Unknown]
  - Contusion [Recovered/Resolved]
  - Weight increased [Not Recovered/Not Resolved]

NARRATIVE: CASE EVENT DATE: 20150402
